FAERS Safety Report 19823489 (Version 2)
Quarter: 2022Q1

REPORT INFORMATION
  Report Type: Spontaneous
  Country: GB (occurrence: GB)
  Receive Date: 20210913
  Receipt Date: 20220105
  Transmission Date: 20220423
  Serious: Yes (Death, Hospitalization, Other)
  Sender: FDA-Public Use
  Company Number: None

PATIENT
  Age: 33 Year
  Sex: Female
  Weight: 74 kg

DRUGS (13)
  1. ELEXACAFTOR\IVACAFTOR\TEZACAFTOR [Suspect]
     Active Substance: ELEXACAFTOR\IVACAFTOR\TEZACAFTOR
     Indication: Cystic fibrosis
     Dosage: 2 TABS/ 1 TAB ALTERNATING DAYS AS PER REDUCED DOSE GUIDELINES
     Route: 048
     Dates: start: 20201023, end: 20210211
  2. ELEXACAFTOR\IVACAFTOR\TEZACAFTOR [Suspect]
     Active Substance: ELEXACAFTOR\IVACAFTOR\TEZACAFTOR
     Indication: CFTR gene mutation
  3. CALCIUM CARBONATE\CHOLECALCIFEROL [Concomitant]
     Active Substance: CALCIUM CARBONATE\CHOLECALCIFEROL
  4. COCODAMOL [Concomitant]
     Active Substance: ACETAMINOPHEN\CODEINE PHOSPHATE
  5. CREON [Concomitant]
     Active Substance: PANCRELIPASE AMYLASE\PANCRELIPASE LIPASE\PANCRELIPASE PROTEASE
  6. FERROUS FUMARATE [Concomitant]
     Active Substance: FERROUS FUMARATE
  7. HUMALOG [Concomitant]
     Active Substance: INSULIN LISPRO
  8. LANSOPRAZOLE [Concomitant]
     Active Substance: LANSOPRAZOLE
  9. LANTUS [Concomitant]
     Active Substance: INSULIN GLARGINE
  10. MOVICOL [Concomitant]
     Active Substance: POLYETHYLENE GLYCOL 3350\POTASSIUM CHLORIDE\SODIUM BICARBONATE\SODIUM CHLORIDE
  11. SERETIDE [Concomitant]
     Active Substance: FLUTICASONE PROPIONATE\SALMETEROL XINAFOATE
  12. URSODIOL [Concomitant]
     Active Substance: URSODIOL
     Dates: start: 1997
  13. VENTOLIN [Concomitant]
     Active Substance: ALBUTEROL SULFATE

REACTIONS (17)
  - Acute on chronic liver failure [Fatal]
  - Liver function test increased [Unknown]
  - Post procedural complication [Fatal]
  - Sepsis [Unknown]
  - Hepatic cirrhosis [Unknown]
  - Hepatic encephalopathy [Not Recovered/Not Resolved]
  - Intracranial pressure increased [Unknown]
  - Confusional state [Unknown]
  - Jaundice [Unknown]
  - Swelling [Unknown]
  - Embolism [Unknown]
  - Cholecystitis [Unknown]
  - Gallbladder enlargement [Unknown]
  - Localised oedema [Unknown]
  - Oedema peripheral [Unknown]
  - Splenic varices [Unknown]
  - Unresponsive to stimuli [Unknown]

NARRATIVE: CASE EVENT DATE: 20201023
